FAERS Safety Report 6183942-9 (Version None)
Quarter: 2009Q2

REPORT INFORMATION
  Report Type: 
  Country: None (occurrence: None)
  Receive Date: 20090506
  Receipt Date: 20090506
  Transmission Date: 20091009
  Serious: Yes (Hospitalization, Other)
  Sender: FDA-Public Use
  Company Number: None

PATIENT
  Age: 48 Year
  Sex: Female
  Weight: 46 kg

DRUGS (17)
  1. GEMCITABINE [Suspect]
     Indication: PANCREATIC CARCINOMA METASTATIC
     Dosage: 1000 MG/M**2 QW IV
     Route: 042
     Dates: start: 20090310, end: 20090310
  2. PLACEBO SOLUTION FOR INFUSION [Suspect]
     Indication: PANCREATIC CARCINOMA METASTATIC
     Dosage: 2 MG/KG Q2W IV
     Route: 042
     Dates: start: 20090124, end: 20090310
  3. TRAMADOL [Concomitant]
  4. ETORICOXIB [Concomitant]
  5. MEBEVERINE [Concomitant]
  6. PANTOPRAZOLE SODIUM [Concomitant]
  7. SODIUM PICOSULFATE [Concomitant]
  8. OMPERIDONE [Concomitant]
  9. DEXTROSE NORMAL SALINE [Concomitant]
  10. RANITIDINE [Concomitant]
  11. SODIUM CHLORIDE [Concomitant]
  12. CELESEMINE [Concomitant]
  13. MULTI-VITAMIN [Concomitant]
  14. ITOPRIDE HYDROCHLORIDE [Concomitant]
  15. ONDANSETRON [Concomitant]
  16. DEXAMETHAXONE [Concomitant]
  17. GRANISETRON HCL [Concomitant]

REACTIONS (14)
  - BLOOD ALBUMIN DECREASED [None]
  - BLOOD CHLORIDE DECREASED [None]
  - BLOOD POTASSIUM DECREASED [None]
  - BLOOD SODIUM DECREASED [None]
  - DEEP VEIN THROMBOSIS [None]
  - EXTRASYSTOLES [None]
  - HYPOCALCAEMIA [None]
  - HYPOMAGNESAEMIA [None]
  - LABORATORY TEST ABNORMAL [None]
  - PALMAR-PLANTAR ERYTHRODYSAESTHESIA SYNDROME [None]
  - PULMONARY EMBOLISM [None]
  - SEPSIS [None]
  - SINUS BRADYCARDIA [None]
  - VENTRICULAR ARRHYTHMIA [None]
